FAERS Safety Report 23538329 (Version 6)
Quarter: 2025Q4

REPORT INFORMATION
  Report Type: Spontaneous
  Country: US (occurrence: US)
  Receive Date: 20240219
  Receipt Date: 20251214
  Transmission Date: 20260118
  Serious: No
  Sender: PFIZER
  Company Number: US-PFIZER INC-PV202300157174

PATIENT
  Age: 74 Year
  Sex: Female
  Weight: 74.83 kg

DRUGS (3)
  1. IBRANCE [Suspect]
     Active Substance: PALBOCICLIB
     Indication: Breast cancer female
     Dosage: 125 MG, TAKE ON DAYS 1-21 (THEN REST FOR 7 DAYS) OF EACH 28 DAY CYCLE/ THEN REST FOR 7 DAYS
     Route: 048
     Dates: start: 20230921
  2. IBRANCE [Suspect]
     Active Substance: PALBOCICLIB
     Dosage: TAKE 1 TABLET (100 MG TOTAL) BY MOUTH ONE TIME EACH DAY. TAKE ON DAYS 1-21 OF EACH 28-DAY CYCLE
     Route: 048
  3. LETROZOLE [Concomitant]
     Active Substance: LETROZOLE
     Indication: Invasive ductal breast carcinoma
     Dosage: UNK
     Dates: start: 20230724

REACTIONS (5)
  - Back pain [Unknown]
  - Hypoacusis [Unknown]
  - Infection [Unknown]
  - Fatigue [Recovering/Resolving]
  - Breast mass [Unknown]

NARRATIVE: CASE EVENT DATE: 20241101
